FAERS Safety Report 7822926-9 (Version None)
Quarter: 2011Q4

REPORT INFORMATION
  Report Type: 
  Country: None (occurrence: None)
  Receive Date: 20111018
  Receipt Date: 20110113
  Transmission Date: 20120403
  Serious: No
  Sender: FDA-Public Use
  Company Number: US-ASTRAZENECA-2010SE56599

PATIENT
  Age: 85 Year
  Sex: Male
  Weight: 68 kg

DRUGS (1)
  1. SYMBICORT [Suspect]
     Indication: ASTHMA
     Dosage: 320 UG BID (TWO PUFFS IN THE MORNING AND ONE PUFF AT NIGHT)
     Route: 055
     Dates: start: 20090101

REACTIONS (1)
  - DYSPNOEA EXERTIONAL [None]
